FAERS Safety Report 10057141 (Version 1)
Quarter: 2014Q2

REPORT INFORMATION
  Report Type: Spontaneous
  Country: SE (occurrence: SE)
  Receive Date: 20140403
  Receipt Date: 20140403
  Transmission Date: 20141212
  Serious: Yes (Other)
  Sender: FDA-Public Use
  Company Number: SE-PFIZER INC-2014089859

PATIENT
  Age: 65 Year
  Sex: Female

DRUGS (4)
  1. DALACIN [Suspect]
     Indication: INFECTION
     Dosage: 600 MG, UNK
     Route: 042
     Dates: start: 20131023, end: 20131025
  2. MORPHINE SULFATE [Suspect]
     Dosage: UNK
  3. VANCOMYCIN HCL [Suspect]
     Indication: INFECTION
     Dosage: 1 G, 2X/DAY
     Dates: start: 20131025
  4. XARELTO [Concomitant]
     Dosage: UNK

REACTIONS (4)
  - Hallucination [Unknown]
  - Urticaria [Unknown]
  - Nausea [Unknown]
  - Generalised erythema [Unknown]
